FAERS Safety Report 14568880 (Version 1)
Quarter: 2018Q1

REPORT INFORMATION
  Report Type: Spontaneous
  Country: JP (occurrence: JP)
  Receive Date: 20180223
  Receipt Date: 20180223
  Transmission Date: 20180509
  Serious: Yes (Other)
  Sender: FDA-Public Use
  Company Number: JP-BAYER-2018-033482

PATIENT
  Age: 69 Year
  Sex: Male

DRUGS (5)
  1. STIVARGA [Suspect]
     Active Substance: REGORAFENIB
     Indication: HEPATOCELLULAR CARCINOMA
     Dosage: DAILY DOSE 40-80 MG
     Route: 048
     Dates: start: 201708
  2. NEXAVAR [Suspect]
     Active Substance: SORAFENIB
     Indication: HEPATOCELLULAR CARCINOMA
     Dosage: DAILY DOSE 800MG
     Route: 048
  3. NEXAVAR [Suspect]
     Active Substance: SORAFENIB
     Indication: HEPATOCELLULAR CARCINOMA
     Dosage: DAILY DOSE 400MG
     Route: 048
     Dates: end: 2017
  4. STIVARGA [Suspect]
     Active Substance: REGORAFENIB
     Indication: HEPATOCELLULAR CARCINOMA
     Dosage: DAILY DOSE 40 MG
     Route: 048
     Dates: start: 2017
  5. NEXAVAR [Suspect]
     Active Substance: SORAFENIB
     Indication: HEPATOCELLULAR CARCINOMA
     Dosage: DAILY DOSE 400MG
     Route: 048
     Dates: start: 201506

REACTIONS (9)
  - Hepatocellular carcinoma [None]
  - Diarrhoea [None]
  - Metastases to pleura [None]
  - Metastases to lymph nodes [None]
  - Vomiting [None]
  - Metastases to bone [None]
  - Oesophageal varices haemorrhage [None]
  - Metastases to lung [None]
  - Tumour invasion [None]

NARRATIVE: CASE EVENT DATE: 201511
